FAERS Safety Report 14113148 (Version 1)
Quarter: 2017Q4

REPORT INFORMATION
  Report Type: Spontaneous
  Country: US (occurrence: None)
  Receive Date: 20171020
  Receipt Date: 20171020
  Transmission Date: 20180321
  Serious: Yes (Hospitalization)
  Sender: FDA-Public Use
  Company Number: None

PATIENT
  Age: 83 Year
  Sex: Female

DRUGS (18)
  1. ENBREL [Suspect]
     Active Substance: ETANERCEPT
     Indication: RHEUMATOID ARTHRITIS
     Route: 058
     Dates: start: 20080418
  2. ZOLPIDEM [Concomitant]
     Active Substance: ZOLPIDEM\ZOLPIDEM TARTRATE
  3. RABEPRAZOLE [Concomitant]
     Active Substance: RABEPRAZOLE
  4. FERROUS SULF [Concomitant]
     Active Substance: FERROUS SULFATE
  5. METOPROLOL TARTRATE. [Concomitant]
     Active Substance: METOPROLOL TARTRATE
  6. BIMATOPROST. [Concomitant]
     Active Substance: BIMATOPROST
  7. LATISSE [Concomitant]
     Active Substance: BIMATOPROST
  8. CEPHALEXIN. [Concomitant]
     Active Substance: CEPHALEXIN
  9. OMEPRAZOLE. [Concomitant]
     Active Substance: OMEPRAZOLE
  10. ALPRAZOLAM. [Concomitant]
     Active Substance: ALPRAZOLAM
  11. VALSART/HCTZ TAB [Concomitant]
     Active Substance: HYDROCHLOROTHIAZIDE\VALSARTAN
  12. AMIODARONE [Concomitant]
     Active Substance: AMIODARONE
  13. BENICAR [Concomitant]
     Active Substance: OLMESARTAN MEDOXOMIL
  14. PRADAXA [Concomitant]
     Active Substance: DABIGATRAN ETEXILATE MESYLATE
  15. NORTRIPTYLIN [Concomitant]
     Active Substance: NORTRIPTYLINE
  16. MEPERITAB [Concomitant]
     Active Substance: MEPERIDINE HYDROCHLORIDE
  17. PLAQUENIL [Concomitant]
     Active Substance: HYDROXYCHLOROQUINE SULFATE
  18. RESTASIS [Concomitant]
     Active Substance: CYCLOSPORINE

REACTIONS (3)
  - Hip fracture [None]
  - Drug dose omission [None]
  - Therapy cessation [None]

NARRATIVE: CASE EVENT DATE: 20170827
